FAERS Safety Report 25989609 (Version 1)
Quarter: 2025Q4

REPORT INFORMATION
  Report Type: Spontaneous
  Country: US (occurrence: None)
  Receive Date: 20251031
  Receipt Date: 20251031
  Transmission Date: 20260118
  Serious: Yes (Hospitalization)
  Sender: FDA-CTU
  Company Number: None

PATIENT
  Sex: Female

DRUGS (5)
  1. XELJANZ [Suspect]
     Active Substance: TOFACITINIB CITRATE
     Indication: Rheumatoid arthritis
     Dosage: FREQUENCY : DAILY;?
     Route: 048
     Dates: start: 20250703
  2. ELIQUIS [Concomitant]
     Active Substance: APIXABAN
  3. METOPROLOL SUCCINATE [Concomitant]
     Active Substance: METOPROLOL SUCCINATE
  4. PREDNISONE 2.5MG TABLETS [Concomitant]
  5. VITAMIN C 1000MG TABLETS [Concomitant]

REACTIONS (2)
  - Atrial fibrillation [None]
  - Pulmonary embolism [None]
